FAERS Safety Report 7915225-8 (Version None)
Quarter: 2011Q4

REPORT INFORMATION
  Report Type: 
  Country: None (occurrence: None)
  Receive Date: 20111115
  Receipt Date: 20111108
  Transmission Date: 20120403
  Serious: Yes (Death)
  Sender: FDA-Public Use
  Company Number: US-SANTEN INC.-INC-11-000055

PATIENT
  Sex: 0
  Weight: 104.87 kg

DRUGS (8)
  1. BENICAR [Concomitant]
  2. NORVASC [Concomitant]
  3. MOBIC [Concomitant]
  4. MESTINON [Concomitant]
  5. XANAX [Concomitant]
  6. NORCO [Concomitant]
  7. BETIMOL [Suspect]
     Indication: GLAUCOMA
     Route: 047
  8. VYTORIN [Concomitant]

REACTIONS (1)
  - MYASTHENIA GRAVIS CRISIS [None]
